FAERS Safety Report 5597996-1 (Version None)
Quarter: 2008Q1

REPORT INFORMATION
  Report Type: 
  Country: None (occurrence: None)
  Receive Date: 20080116
  Receipt Date: 20080107
  Transmission Date: 20080703
  Serious: Yes (Other)
  Sender: FDA-Public Use
  Company Number: 2007-03211

PATIENT
  Age: 62 Year
  Sex: Female
  Weight: 54 kg

DRUGS (3)
  1. VELCADE [Suspect]
     Indication: MULTIPLE MYELOMA
     Dosage: 1.30 MG/M2, INTRAVENOUS; 0.70 MG/M2, INTRAVENOUS
     Route: 042
     Dates: start: 20070910, end: 20071201
  2. VELCADE [Suspect]
     Indication: MULTIPLE MYELOMA
     Dosage: 1.30 MG/M2, INTRAVENOUS; 0.70 MG/M2, INTRAVENOUS
     Route: 042
     Dates: start: 20070611
  3. DEXAMETHASONE TAB [Concomitant]

REACTIONS (5)
  - CARDIAC DISORDER [None]
  - CARDIAC FAILURE [None]
  - ERYTHEMA NODOSUM [None]
  - ORTHOSTATIC HYPOTENSION [None]
  - PLASMACYTOMA [None]
